FAERS Safety Report 5083604-5 (Version None)
Quarter: 2006Q3

REPORT INFORMATION
  Report Type: 
  Country: None (occurrence: None)
  Receive Date: 20060818
  Receipt Date: 20060808
  Transmission Date: 20061208
  Serious: Yes (Life-Threatening)
  Sender: FDA-Public Use
  Company Number: FR-GLAXOSMITHKLINE-B0434293A

PATIENT
  Age: 56 Year
  Sex: Female
  Weight: 60 kg

DRUGS (2)
  1. ZOPHREN IV [Suspect]
     Indication: VOMITING
     Dosage: 4MG SINGLE DOSE
     Route: 042
     Dates: start: 20050303
  2. ATROPINE [Concomitant]
     Indication: BRADYCARDIA
     Dosage: .5MG SINGLE DOSE
     Route: 042
     Dates: start: 20050303

REACTIONS (8)
  - ANGINA PECTORIS [None]
  - ATRIAL FIBRILLATION [None]
  - BRADYCARDIA [None]
  - CHEST PAIN [None]
  - ELECTROCARDIOGRAM REPOLARISATION ABNORMALITY [None]
  - HYPOTENSION [None]
  - MYOCARDIAL ISCHAEMIA [None]
  - TROPONIN INCREASED [None]
